FAERS Safety Report 6698902-9 (Version None)
Quarter: 2010Q2

REPORT INFORMATION
  Report Type: 
  Country: None (occurrence: None)
  Receive Date: 20100426
  Receipt Date: 20100426
  Transmission Date: 20101027
  Serious: Yes (Other)
  Sender: FDA-Public Use
  Company Number: None

PATIENT
  Sex: Female
  Weight: 66.6788 kg

DRUGS (3)
  1. CYTOXAN [Suspect]
     Indication: BREAST CANCER
     Dosage: 985MG Q3WEEK IV
     Route: 048
     Dates: start: 20100312, end: 20100402
  2. NEULASTA [Suspect]
     Indication: BREAST CANCER
     Dosage: 985MG Q3WEEK IV
     Route: 042
     Dates: start: 20100312, end: 20100402
  3. TAXOTERE [Suspect]
     Indication: BREAST CANCER
     Dosage: 125MG Q3WEEK IV
     Route: 042
     Dates: start: 20100312, end: 20100402

REACTIONS (4)
  - ANGIOEDEMA [None]
  - NO THERAPEUTIC RESPONSE [None]
  - PRURITUS [None]
  - THROAT TIGHTNESS [None]
